FAERS Safety Report 5517490-3 (Version None)
Quarter: 2007Q4

REPORT INFORMATION
  Report Type: 
  Country: None (occurrence: None)
  Receive Date: 20071114
  Receipt Date: 20071107
  Transmission Date: 20080405
  Serious: Yes (Hospitalization)
  Sender: FDA-Public Use
  Company Number: DE-JNJFOC-20071002152

PATIENT
  Sex: Male
  Weight: 75.7 kg

DRUGS (8)
  1. INVEGA [Suspect]
     Route: 048
  2. INVEGA [Suspect]
     Indication: PSYCHOTIC DISORDER
     Route: 048
  3. ERGENYL CHRONO [Concomitant]
     Indication: DRUG THERAPY
     Route: 048
  4. ATACAND [Concomitant]
     Indication: HYPERTENSION
     Route: 048
  5. HALDOL [Concomitant]
     Indication: PSYCHOTIC DISORDER
     Route: 048
  6. ATOSIL [Concomitant]
     Route: 048
  7. ATOSIL [Concomitant]
     Route: 048
  8. ATOSIL [Concomitant]
     Indication: PSYCHOTIC DISORDER
     Route: 048

REACTIONS (1)
  - AGGRESSION [None]
